FAERS Safety Report 21568681 (Version 1)
Quarter: 2022Q4

REPORT INFORMATION
  Report Type: Report from Study
  Country: US (occurrence: US)
  Receive Date: 20221108
  Receipt Date: 20221108
  Transmission Date: 20230113
  Serious: Yes (Other)
  Sender: FDA-Public Use
  Company Number: US-NOVOPROD-974053

PATIENT
  Sex: Male
  Weight: 108.86 kg

DRUGS (2)
  1. NOVOLIN 70/30 [Suspect]
     Active Substance: INSULIN HUMAN
     Indication: Product used for unknown indication
     Dosage: UNK
     Route: 058
     Dates: end: 2021
  2. NOVOLOG MIX 70/30 [Suspect]
     Active Substance: INSULIN ASPART
     Indication: Product used for unknown indication
     Dosage: UNK
     Route: 058

REACTIONS (5)
  - Diabetic neuropathy [Not Recovered/Not Resolved]
  - Road traffic accident [Unknown]
  - Renal disorder [Not Recovered/Not Resolved]
  - Eye disorder [Unknown]
  - Drug ineffective [Unknown]
